FAERS Safety Report 24339344 (Version 2)
Quarter: 2024Q4

REPORT INFORMATION
  Report Type: Spontaneous
  Country: US (occurrence: US)
  Receive Date: 20240919
  Receipt Date: 20241003
  Transmission Date: 20250114
  Serious: Yes (Hospitalization)
  Sender: INCYTE
  Company Number: US-INCYTE CORPORATION-2024IN009667

PATIENT

DRUGS (1)
  1. JAKAFI [Suspect]
     Active Substance: RUXOLITINIB
     Indication: Essential thrombocythaemia
     Dosage: 5 MILLIGRAM, BID
     Route: 048

REACTIONS (3)
  - Ill-defined disorder [Unknown]
  - Bone marrow disorder [Unknown]
  - Off label use [Unknown]
